FAERS Safety Report 9944712 (Version 1)
Quarter: 2014Q1

REPORT INFORMATION
  Report Type: Report from Study
  Country: US (occurrence: US)
  Receive Date: 20140303
  Receipt Date: 20140303
  Transmission Date: 20141002
  Serious: No
  Sender: FDA-Public Use
  Company Number: US-ABBVIE-13P-163-1055061-00

PATIENT
  Age: 54 Year
  Sex: Male

DRUGS (4)
  1. HUMIRA [Suspect]
     Indication: PSORIATIC ARTHROPATHY
     Dates: start: 20130221
  2. GABAPENTIN [Concomitant]
     Indication: RESTLESS LEGS SYNDROME
     Dosage: 1-2 DAILY
  3. FLEXERIL [Concomitant]
     Indication: MUSCLE RELAXANT THERAPY
  4. BUTAL-CAF-APAP-COD-CAP [Concomitant]
     Indication: MIGRAINE

REACTIONS (2)
  - Flushing [Not Recovered/Not Resolved]
  - Headache [Not Recovered/Not Resolved]
